FAERS Safety Report 18192668 (Version 1)
Quarter: 2020Q3

REPORT INFORMATION
  Report Type: Report from Study
  Country: US (occurrence: US)
  Receive Date: 20200825
  Receipt Date: 20200825
  Transmission Date: 20201103
  Serious: Yes (Life-Threatening, Hospitalization)
  Sender: FDA-Public Use
  Company Number: US-MYLANLABS-2020M1074020

PATIENT
  Age: 1 Year

DRUGS (7)
  1. METHOTREXATE. [Suspect]
     Active Substance: METHOTREXATE
     Indication: ACUTE LYMPHOCYTIC LEUKAEMIA
     Dosage: UNK
     Route: 037
  2. VINCRISTINE [Suspect]
     Active Substance: VINCRISTINE
     Indication: ACUTE LYMPHOCYTIC LEUKAEMIA
     Dosage: AS A PART OF UK ALLR3 REINDUCTION REGIMEN; MAXIMUM DOSE 2 MG ON DAY 10, 17, 24 AND 31
     Route: 065
  3. PEG/L?ASPARAGINASE [Suspect]
     Active Substance: PEGASPARGASE
     Indication: ACUTE LYMPHOCYTIC LEUKAEMIA
     Dosage: AS A PART OF UK ALLR3 REINDUCTION REGIMEN; 2,500 IU/M2/DOSE ON DAY 10 AND 24
     Route: 065
  4. MITOXANTRONE [Suspect]
     Active Substance: MITOXANTRONE HYDROCHLORIDE
     Indication: ACUTE LYMPHOCYTIC LEUKAEMIA
     Dosage: AS A PART OF UK ALLR3 REINDUCTION REGIMEN; ON DAY 8 AND 9
     Route: 065
  5. DEXAMETHASONE. [Suspect]
     Active Substance: DEXAMETHASONE
     Indication: ACUTE LYMPHOCYTIC LEUKAEMIA
     Dosage: AS A PART OF UK ALLR3 REINDUCTION REGIMEN; THE DOSE DIVIDED TWICE DAILY ON DAY 8?12 AND DAY 22?26
     Route: 065
  6. VORINOSTAT [Suspect]
     Active Substance: VORINOSTAT
     Indication: ACUTE LYMPHOCYTIC LEUKAEMIA
     Dosage: MAXIMUM DOSE 400MG DAILY; ON DAY 2?7 AND DAY 16?21
     Route: 048
  7. DECITABINE. [Suspect]
     Active Substance: DECITABINE
     Indication: ACUTE LYMPHOCYTIC LEUKAEMIA
     Dosage: ON DAY 1?5 AND DAY 15?19
     Route: 042

REACTIONS (5)
  - Pseudomonas infection [Unknown]
  - Adenovirus infection [Unknown]
  - Pseudomonal sepsis [Unknown]
  - Soft tissue infection [Unknown]
  - Enterocolitis infectious [Unknown]
